FAERS Safety Report 24559692 (Version 1)
Quarter: 2024Q4

REPORT INFORMATION
  Report Type: Other
  Country: US (occurrence: US)
  Receive Date: 20241029
  Receipt Date: 20241029
  Transmission Date: 20250115
  Serious: No
  Sender: ALMIRALL, LLC
  Company Number: US-ALMIRALL, LLC-2024AQU000087

PATIENT
  Sex: Male

DRUGS (2)
  1. SEYSARA [Suspect]
     Active Substance: SARECYCLINE HYDROCHLORIDE
     Indication: Product used for unknown indication
     Dosage: UNK
     Route: 065
  2. DUPIXENT [Suspect]
     Active Substance: DUPILUMAB
     Indication: Product used for unknown indication
     Dosage: UNK
     Route: 065

REACTIONS (8)
  - Eye disorder [Unknown]
  - Head discomfort [Unknown]
  - Dysarthria [Unknown]
  - Photophobia [Unknown]
  - Dyspepsia [Unknown]
  - Eye irritation [Unknown]
  - Motor dysfunction [Unknown]
  - Euphoric mood [Unknown]
